FAERS Safety Report 14973135 (Version 2)
Quarter: 2018Q2

REPORT INFORMATION
  Report Type: Report from Study
  Country: US (occurrence: US)
  Receive Date: 20180605
  Receipt Date: 20180613
  Transmission Date: 20180711
  Serious: Yes (Death, Hospitalization, Other)
  Sender: FDA-Public Use
  Company Number: US-GILEAD-2018-0342340

PATIENT
  Age: 23 Year
  Sex: Female
  Weight: 55.4 kg

DRUGS (3)
  1. AMBRISENTAN [Suspect]
     Active Substance: AMBRISENTAN
     Indication: PULMONARY ARTERIAL HYPERTENSION
     Dosage: 5 MG, UNK
     Route: 065
     Dates: start: 20100924
  2. VELETRI [Concomitant]
     Active Substance: EPOPROSTENOL
  3. ADCIRCA [Concomitant]
     Active Substance: TADALAFIL

REACTIONS (5)
  - Right ventricular failure [Fatal]
  - Hypotension [Not Recovered/Not Resolved]
  - Pulmonary arterial hypertension [Fatal]
  - Cellulitis [Unknown]
  - Ascites [Unknown]
